FAERS Safety Report 7368324-6 (Version None)
Quarter: 2011Q1

REPORT INFORMATION
  Report Type: 
  Country: None (occurrence: None)
  Receive Date: 20110323
  Receipt Date: 20110317
  Transmission Date: 20110831
  Serious: No
  Sender: FDA-Public Use
  Company Number: US-PFIZER INC-2011059716

PATIENT
  Sex: Female
  Weight: 87.528 kg

DRUGS (5)
  1. GABAPENTIN [Suspect]
     Indication: PAIN IN EXTREMITY
     Dosage: 900 MG, 3X/DAY
  2. GABAPENTIN [Suspect]
     Indication: AUTONOMIC NEUROPATHY
     Dosage: 300 MG, 3X/DAY
  3. CYMBALTA [Concomitant]
     Indication: PAIN IN EXTREMITY
     Dosage: 60 MG, 2X/DAY
  4. LYRICA [Suspect]
     Indication: PAIN IN EXTREMITY
     Dosage: UNK
  5. TRAMADOL [Concomitant]
     Indication: INSOMNIA
     Dosage: UNK

REACTIONS (4)
  - BLOOD CHOLESTEROL INCREASED [None]
  - PRODUCT ODOUR ABNORMAL [None]
  - PAIN IN EXTREMITY [None]
  - DRUG INEFFECTIVE [None]
